FAERS Safety Report 7301931-5 (Version None)
Quarter: 2011Q1

REPORT INFORMATION
  Report Type: 
  Country: None (occurrence: None)
  Receive Date: 20110218
  Receipt Date: 20110207
  Transmission Date: 20110831
  Serious: Yes (Hospitalization)
  Sender: FDA-Public Use
  Company Number: DE-SANOFI-AVENTIS-2011SA005515

PATIENT
  Age: 80 Year
  Sex: Male

DRUGS (4)
  1. CARBIMAZOL [Suspect]
     Indication: HYPERTHYROIDISM
     Route: 048
     Dates: start: 20101101, end: 20101201
  2. MULTAQ [Suspect]
     Route: 048
     Dates: start: 20101101, end: 20101201
  3. SEROQUEL [Suspect]
     Indication: DEPRESSION
     Route: 065
     Dates: start: 20101101, end: 20101201
  4. THYROID HORMONES [Concomitant]
     Route: 065

REACTIONS (8)
  - HEPATOTOXICITY [None]
  - ALANINE AMINOTRANSFERASE INCREASED [None]
  - BLOOD BILIRUBIN INCREASED [None]
  - JAUNDICE [None]
  - GAMMA-GLUTAMYLTRANSFERASE INCREASED [None]
  - ASPARTATE AMINOTRANSFERASE INCREASED [None]
  - BLOOD ALKALINE PHOSPHATASE INCREASED [None]
  - CHOLESTATIC LIVER INJURY [None]
